FAERS Safety Report 20191189 (Version 1)
Quarter: 2021Q4

REPORT INFORMATION
  Report Type: Spontaneous
  Country: None (occurrence: A1)
  Receive Date: 20211216
  Receipt Date: 20211216
  Transmission Date: 20220304
  Serious: Yes (Other)
  Sender: FDA-Public Use
  Company Number: A1-Acella Pharmaceuticals, LLC-2123086

PATIENT
  Age: 81 Year
  Sex: Male

DRUGS (2)
  1. GABAPENTIN [Suspect]
     Active Substance: GABAPENTIN
     Indication: Product used for unknown indication
     Route: 065
  2. DIAZEPAM [Suspect]
     Active Substance: DIAZEPAM
     Route: 065

REACTIONS (8)
  - Delirium [Unknown]
  - Fall [Recovered/Resolved]
  - Hip fracture [Unknown]
  - Hallucination [Unknown]
  - Compulsions [Unknown]
  - Agitation [Unknown]
  - Delusion [Unknown]
  - Drug withdrawal syndrome [Unknown]
